FAERS Safety Report 8143843 (Version 4)
Quarter: 2014Q3

REPORT INFORMATION
  Report Type: Spontaneous
  Country: JP (occurrence: JP)
  Receive Date: 20110920
  Receipt Date: 20140825
  Transmission Date: 20150326
  Serious: Yes (Other)
  Sender: FDA-Public Use
  Company Number: JP-PFIZER INC-2011217555

PATIENT
  Age: 76 Year
  Sex: Female
  Weight: 58.3 kg

DRUGS (3)
  1. SUTENT [Suspect]
     Active Substance: SUNITINIB MALATE
     Indication: METASTATIC RENAL CELL CARCINOMA
     Dosage: 37.5 MG, DAILY
     Route: 048
     Dates: start: 20100527
  2. NORVASC [Concomitant]
     Active Substance: AMLODIPINE BESYLATE
     Indication: HYPERTENSION
     Dosage: 5 MG, 1X/DAY
     Route: 048
     Dates: start: 20060609
  3. FERROSTEC [Concomitant]
     Indication: IRON DEFICIENCY ANAEMIA
     Dosage: 200 MG, 1X/DAY
     Route: 048
     Dates: start: 2010

REACTIONS (2)
  - Hypothyroidism [Unknown]
  - Thyroiditis [Recovered/Resolved]

NARRATIVE: CASE EVENT DATE: 20100604
